FAERS Safety Report 7642559-7 (Version None)
Quarter: 2011Q3

REPORT INFORMATION
  Report Type: 
  Country: None (occurrence: None)
  Receive Date: 20110728
  Receipt Date: 20110725
  Transmission Date: 20111222
  Serious: Yes (Other)
  Sender: FDA-Public Use
  Company Number: US-ROXANE LABORATORIES, INC.-2011-RO-01068RO

PATIENT
  Sex: Female

DRUGS (4)
  1. LIDOCAINE [Suspect]
     Route: 061
  2. SYNTHROID [Concomitant]
  3. VITAMIN D [Concomitant]
  4. SCULPTRA [Suspect]
     Route: 062
     Dates: start: 20110513, end: 20110513

REACTIONS (2)
  - ERYTHEMA [None]
  - SWELLING FACE [None]
